FAERS Safety Report 5042454-6 (Version None)
Quarter: 2006Q2

REPORT INFORMATION
  Report Type: 
  Country: None (occurrence: None)
  Receive Date: 20060627
  Receipt Date: 20060612
  Transmission Date: 20061013
  Serious: Yes (Hospitalization)
  Sender: FDA-Public Use
  Company Number: FR200606002462

PATIENT
  Age: 73 Year
  Sex: Female

DRUGS (3)
  1. FORTEO [Suspect]
     Indication: OSTEOPOROSIS
     Dosage: SEE IMAGE
     Route: 058
     Dates: start: 20051017, end: 20060312
  2. FORTEO [Suspect]
     Indication: OSTEOPOROSIS
     Dosage: SEE IMAGE
     Route: 058
     Dates: start: 20060322
  3. FORTEO [Concomitant]

REACTIONS (3)
  - HERNIAL EVENTRATION [None]
  - MICTURITION URGENCY [None]
  - URINARY TRACT INFECTION [None]
